FAERS Safety Report 7223456-8 (Version None)
Quarter: 2011Q1

REPORT INFORMATION
  Report Type: 
  Country: None (occurrence: None)
  Receive Date: 20110112
  Receipt Date: 20100629
  Transmission Date: 20110831
  Serious: No
  Sender: FDA-Public Use
  Company Number: US-ALLERGAN-1008478US

PATIENT
  Sex: Female

DRUGS (8)
  1. FOLIC ACID [Concomitant]
  2. RESTASIS [Suspect]
     Indication: DRY EYE
     Dosage: UNK
     Route: 047
     Dates: start: 20100301
  3. ASPIRIN [Concomitant]
  4. VITAMIN B-12 [Concomitant]
  5. SYNTHROID [Concomitant]
  6. LIPITOR [Concomitant]
  7. TRILIPIX [Concomitant]
  8. REFRESH PLUS [Concomitant]

REACTIONS (2)
  - FOREIGN BODY SENSATION IN EYES [None]
  - EYE IRRITATION [None]
